FAERS Safety Report 5192218-8 (Version None)
Quarter: 2006Q4

REPORT INFORMATION
  Report Type: 
  Country: None (occurrence: None)
  Receive Date: 20061220
  Receipt Date: 20061211
  Transmission Date: 20070319
  Serious: Yes (Other)
  Sender: FDA-Public Use
  Company Number: 2006143369

PATIENT
  Age: 35 Year
  Sex: Female
  Weight: 72 kg

DRUGS (7)
  1. XALATAN [Suspect]
     Indication: INTRAOCULAR PRESSURE INCREASED
     Dosage: (1 IN 1 D), OPHTHALMIC
     Route: 047
     Dates: start: 20060216, end: 20061101
  2. ............................... [Concomitant]
  3. ALL OTHER THERAPEUTIC PRODUCTS [Concomitant]
  4. TIMOLOL MALEATE [Concomitant]
  5. METHOTREXATE [Concomitant]
  6. PREDNISOLONE [Concomitant]
  7. FOLIC ACID [Concomitant]

REACTIONS (1)
  - PALPITATIONS [None]
